FAERS Safety Report 5286454-X (Version None)
Quarter: 2007Q2

REPORT INFORMATION
  Report Type: 
  Country: None (occurrence: None)
  Receive Date: 20070404
  Receipt Date: 20070327
  Transmission Date: 20071010
  Serious: Yes (Hospitalization)
  Sender: FDA-Public Use
  Company Number: GB-JNJFOC-20070302239

PATIENT
  Age: 8 Year
  Sex: Male

DRUGS (3)
  1. IBUPROFEN [Suspect]
     Indication: VIRAEMIA
     Route: 048
  2. ACETAMINOPHEN [Suspect]
  3. ACETAMINOPHEN [Suspect]
     Indication: VIRAEMIA

REACTIONS (2)
  - RENAL PAPILLARY NECROSIS [None]
  - URETERIC OBSTRUCTION [None]
